FAERS Safety Report 7931418-8 (Version None)
Quarter: 2011Q4

REPORT INFORMATION
  Report Type: 
  Country: None (occurrence: None)
  Receive Date: 20111121
  Receipt Date: 20111108
  Transmission Date: 20120403
  Serious: Yes (Other)
  Sender: FDA-Public Use
  Company Number: US-BAYER-2011-108825

PATIENT
  Age: 40 Year
  Sex: Female
  Weight: 152 kg

DRUGS (3)
  1. RID 1-2-3 SYSTEM [Suspect]
     Indication: LICE INFESTATION
     Dosage: 1 DF, ONCE
     Route: 061
     Dates: start: 20111027
  2. ALCOHOL [Concomitant]
     Route: 061
  3. EQUATE BRAND LICE TREATMENT [Suspect]
     Dosage: UNK
     Route: 061
     Dates: start: 20111028, end: 20111028

REACTIONS (6)
  - AMNESIA [None]
  - ORAL PAIN [None]
  - EYE INFECTION [None]
  - DIARRHOEA [None]
  - CHEST PAIN [None]
  - HEADACHE [None]
